FAERS Safety Report 6591311-2 (Version None)
Quarter: 2010Q1

REPORT INFORMATION
  Report Type: 
  Country: None (occurrence: None)
  Receive Date: 20100219
  Receipt Date: 20100209
  Transmission Date: 20100710
  Serious: Yes (Disabling)
  Sender: FDA-Public Use
  Company Number: GB-PFIZER INC-2010016613

PATIENT
  Age: 45 Year
  Sex: Female

DRUGS (3)
  1. MARAVIROC [Suspect]
     Dosage: 150 MG, 2X/DAY
     Route: 048
     Dates: start: 20091222
  2. RALTEGRAVIR [Suspect]
     Indication: HIV INFECTION
     Dosage: 400 MG, 2X/DAY
     Route: 048
     Dates: start: 20091222
  3. DARUNAVIR [Concomitant]

REACTIONS (2)
  - DIABETES MELLITUS [None]
  - HYPERLIPIDAEMIA [None]
